FAERS Safety Report 15377870 (Version 1)
Quarter: 2018Q3

REPORT INFORMATION
  Report Type: Spontaneous
  Country: US (occurrence: US)
  Receive Date: 20180913
  Receipt Date: 20180913
  Transmission Date: 20181010
  Serious: Yes (Other)
  Sender: FDA-Public Use
  Company Number: US-MYLANLABS-2018M1066207

PATIENT
  Sex: Male
  Weight: 59 kg

DRUGS (1)
  1. CLONAZEPAM TABLETS, USP [Suspect]
     Active Substance: CLONAZEPAM
     Indication: PANIC DISORDER
     Dosage: 0.5 MG, TID
     Route: 048

REACTIONS (10)
  - Blood pressure increased [Unknown]
  - Anxiety [Unknown]
  - Psychotic symptom [Unknown]
  - Heart rate increased [Unknown]
  - Product substitution issue [Unknown]
  - Depersonalisation/derealisation disorder [Unknown]
  - Seizure [Unknown]
  - Drug ineffective [Unknown]
  - Drug withdrawal syndrome [Unknown]
  - Paraesthesia [Unknown]
